FAERS Safety Report 5833951-1 (Version None)
Quarter: 2008Q3

REPORT INFORMATION
  Report Type: 
  Country: None (occurrence: None)
  Receive Date: 20080801
  Receipt Date: 20080801
  Transmission Date: 20090109
  Serious: Yes (Other)
  Sender: FDA-Public Use
  Company Number: None

PATIENT
  Age: 68 Year
  Sex: Female
  Weight: 108.8633 kg

DRUGS (1)
  1. LIPITOR [Suspect]
     Indication: BLOOD CHOLESTEROL INCREASED
     Dosage: 1 TABLET MORNING PO, 2 1/2 YEARS
     Route: 048
     Dates: start: 20060101, end: 20080728

REACTIONS (2)
  - HEPATIC ENZYME INCREASED [None]
  - WEIGHT DECREASED [None]
